FAERS Safety Report 10471175 (Version 2)
Quarter: 2015Q1

REPORT INFORMATION
  Report Type: Report from Study
  Country: US (occurrence: US)
  Receive Date: 20140923
  Receipt Date: 20150218
  Transmission Date: 20150720
  Serious: No
  Sender: FDA-Public Use
  Company Number: US-ALEXION-A200800770

PATIENT

DRUGS (1)
  1. SOLIRIS [Suspect]
     Active Substance: ECULIZUMAB
     Indication: PAROXYSMAL NOCTURNAL HAEMOGLOBINURIA
     Dosage: UNK
     Route: 042

REACTIONS (5)
  - Abdominal pain [Recovered/Resolved]
  - Quality of life decreased [Unknown]
  - Haemoglobinuria [Unknown]
  - Fatigue [Recovered/Resolved]
  - Chromaturia [Recovered/Resolved]
